FAERS Safety Report 7486287-X (Version None)
Quarter: 2011Q2

REPORT INFORMATION
  Report Type: 
  Country: None (occurrence: None)
  Receive Date: 20110517
  Receipt Date: 20110411
  Transmission Date: 20111010
  Serious: No
  Sender: FDA-Public Use
  Company Number: A0923273A

PATIENT
  Age: 36 Year
  Sex: Female

DRUGS (1)
  1. VOTRIENT [Suspect]
     Dosage: 200MG UNKNOWN
     Route: 065
     Dates: start: 20100601, end: 20110114

REACTIONS (1)
  - ADVERSE EVENT [None]
